FAERS Safety Report 16966913 (Version 2)
Quarter: 2019Q4

REPORT INFORMATION
  Report Type: Spontaneous
  Country: US (occurrence: US)
  Receive Date: 20191028
  Receipt Date: 20191211
  Transmission Date: 20200122
  Serious: No
  Sender: FDA-Public Use
  Company Number: US-SA-2019SA297253

PATIENT
  Age: 57 Year
  Sex: Female
  Weight: 107 kg

DRUGS (1)
  1. DUPIXENT [Suspect]
     Active Substance: DUPILUMAB
     Indication: ASTHMA
     Dosage: LOADING DOSE
     Dates: start: 20191007, end: 20191015

REACTIONS (5)
  - Pain in extremity [Unknown]
  - Arthralgia [Unknown]
  - Dyspnoea [Unknown]
  - Feeling hot [Unknown]
  - Eye irritation [Unknown]

NARRATIVE: CASE EVENT DATE: 20191011
